FAERS Safety Report 9812989 (Version 2)
Quarter: 2014Q1

REPORT INFORMATION
  Report Type: Spontaneous
  Country: US (occurrence: US)
  Receive Date: 20140113
  Receipt Date: 20140113
  Transmission Date: 20141002
  Serious: Yes (Death)
  Sender: FDA-Public Use
  Company Number: US-PFIZER INC-2013363676

PATIENT
  Age: 44 Year
  Sex: Male
  Weight: 77.1 kg

DRUGS (7)
  1. SUTENT [Suspect]
     Dosage: UNK
  2. IBUPROFEN [Concomitant]
  3. LASIX [Concomitant]
  4. LISINOPRIL [Concomitant]
  5. LEVETIRACETAM [Concomitant]
     Dosage: UNK
  6. METOLAZONE [Concomitant]
     Dosage: UNK
  7. SIMVASTATIN [Concomitant]

REACTIONS (1)
  - Death [Fatal]
